FAERS Safety Report 6120577-8 (Version None)
Quarter: 2009Q1

REPORT INFORMATION
  Report Type: 
  Country: None (occurrence: None)
  Receive Date: 20090312
  Receipt Date: 20090312
  Transmission Date: 20090719
  Serious: Yes (Hospitalization)
  Sender: FDA-Public Use
  Company Number: None

PATIENT
  Age: 59 Year
  Sex: Male
  Weight: 155.7 kg

DRUGS (1)
  1. VENLAFAXINE [Suspect]
     Dosage: 150 MG TID PO
     Route: 048
     Dates: start: 20070731, end: 20090220

REACTIONS (3)
  - DIZZINESS [None]
  - TORSADE DE POINTES [None]
  - VENTRICULAR TACHYCARDIA [None]
